FAERS Safety Report 5693112-6 (Version None)
Quarter: 2008Q2

REPORT INFORMATION
  Report Type: 
  Country: None (occurrence: None)
  Receive Date: 20080402
  Receipt Date: 20080402
  Transmission Date: 20081010
  Serious: Yes (Hospitalization)
  Sender: FDA-Public Use
  Company Number: None

PATIENT
  Sex: Male
  Weight: 75 kg

DRUGS (1)
  1. TEGRETOL [Suspect]

REACTIONS (3)
  - CONVULSION [None]
  - DRUG TOXICITY [None]
  - VERTIGO [None]
